FAERS Safety Report 12326269 (Version 1)
Quarter: 2016Q2

REPORT INFORMATION
  Report Type: Report from Study
  Country: AT (occurrence: AT)
  Receive Date: 20160503
  Receipt Date: 20160503
  Transmission Date: 20160815
  Serious: Yes (Hospitalization)
  Sender: FDA-Public Use
  Company Number: AT-ABBVIE-16K-009-1616793-00

PATIENT
  Age: 28 Year
  Sex: Male

DRUGS (2)
  1. DESLORATADIN [Concomitant]
     Indication: PRODUCT USED FOR UNKNOWN INDICATION
  2. HUMIRA [Suspect]
     Active Substance: ADALIMUMAB
     Indication: ANKYLOSING SPONDYLITIS
     Route: 058
     Dates: start: 20141021

REACTIONS (4)
  - Weight decreased [Recovered/Resolved]
  - Influenza [Recovered/Resolved]
  - Fatigue [Recovered/Resolved]
  - Hypophagia [Recovered/Resolved]

NARRATIVE: CASE EVENT DATE: 20160321
